FAERS Safety Report 11742753 (Version 2)
Quarter: 2015Q4

REPORT INFORMATION
  Report Type: Spontaneous
  Country: JP (occurrence: JP)
  Receive Date: 20151116
  Receipt Date: 20151218
  Transmission Date: 20160304
  Serious: Yes (Death)
  Sender: FDA-Public Use
  Company Number: JP-ASTRAZENECA-2015SF11155

PATIENT
  Age: 33156 Day
  Sex: Male

DRUGS (7)
  1. VENILON [Concomitant]
     Active Substance: HUMAN IMMUNOGLOBULIN G
     Dates: start: 20120929, end: 20121002
  2. INTRALIPOS [Concomitant]
     Active Substance: SOYBEAN OIL
     Dates: start: 20120918, end: 20121021
  3. MEROPEN [Suspect]
     Active Substance: MEROPENEM
     Indication: CEREBRAL HAEMATOMA
     Route: 042
     Dates: start: 20120928, end: 20121004
  4. MEROPEN [Suspect]
     Active Substance: MEROPENEM
     Indication: INFECTION
     Route: 042
     Dates: start: 20120928, end: 20121004
  5. ALEVIATIN [Concomitant]
     Active Substance: PHENYTOIN SODIUM
     Route: 042
  6. GASTER [Concomitant]
     Active Substance: FAMOTIDINE
     Dates: start: 20120916, end: 20121016
  7. CLINDAMYCIN PHOSPHATE. [Concomitant]
     Active Substance: CLINDAMYCIN PHOSPHATE
     Dates: start: 20120925, end: 20120930

REACTIONS (3)
  - Blood alkaline phosphatase increased [Not Recovered/Not Resolved]
  - Gamma-glutamyltransferase increased [Not Recovered/Not Resolved]
  - Multi-organ failure [Fatal]

NARRATIVE: CASE EVENT DATE: 20120918
